FAERS Safety Report 7455223-4 (Version None)
Quarter: 2011Q2

REPORT INFORMATION
  Report Type: 
  Country: None (occurrence: None)
  Receive Date: 20110503
  Receipt Date: 20110429
  Transmission Date: 20111010
  Serious: Yes (Death, Hospitalization)
  Sender: FDA-Public Use
  Company Number: PHHY2010US87348

PATIENT
  Sex: Male
  Weight: 94.8 kg

DRUGS (8)
  1. EXJADE [Suspect]
     Dosage: 2000 MG,
     Route: 048
  2. REVLIMID [Suspect]
     Indication: CHRONIC LYMPHOCYTIC LEUKAEMIA
     Dosage: 5 MG,
     Route: 048
     Dates: start: 20100901
  3. ALBUTEROL [Concomitant]
     Indication: WHEEZING
     Dosage: UNK
     Dates: start: 20091201
  4. AMUNO [Concomitant]
     Dosage: 500 MG, UNK
     Route: 042
     Dates: start: 20100909
  5. LASIX [Concomitant]
     Dosage: 20 MG, DAILY
     Route: 048
     Dates: start: 20100809
  6. POSACONAZOLE [Concomitant]
     Dosage: 10 ML, TID
     Route: 048
  7. EXJADE [Suspect]
     Indication: CHRONIC LYMPHOCYTIC LEUKAEMIA
     Dosage: 4 DF, QD
     Route: 048
  8. VALTREX [Concomitant]
     Dosage: 500 MG, BID
     Route: 048

REACTIONS (6)
  - HAEMOPTYSIS [None]
  - SEPSIS [None]
  - CARDIAC FAILURE [None]
  - CHRONIC LYMPHOCYTIC LEUKAEMIA [None]
  - TACHYPNOEA [None]
  - TACHYCARDIA [None]
